FAERS Safety Report 4468536-5 (Version None)
Quarter: 2004Q4

REPORT INFORMATION
  Report Type: 
  Country: None (occurrence: None)
  Receive Date: 20041007
  Receipt Date: 20021023
  Transmission Date: 20050328
  Serious: Yes (Death, Hospitalization, Other)
  Sender: FDA-Public Use
  Company Number: PHBS2002JP12903

PATIENT
  Age: 53 Year
  Sex: Male
  Weight: 58 kg

DRUGS (7)
  1. NEORAL [Suspect]
     Indication: PSORIASIS
     Dosage: 150 MG/DAY
     Route: 048
     Dates: start: 20001220, end: 20020313
  2. NEORAL [Suspect]
     Dosage: 200 MG/DAY
     Route: 048
     Dates: start: 20020313, end: 20020910
  3. MARZULENE S [Concomitant]
     Dosage: 1.5 G/D
     Route: 048
     Dates: start: 19931111
  4. MARZULENE S [Concomitant]
     Dosage: 1 G/D
     Route: 048
     Dates: start: 20000705, end: 20020910
  5. MINOCYCLINE HYDROCHLORIDE [Concomitant]
     Dosage: 100 MG/D
     Route: 048
     Dates: start: 20020731, end: 20020814
  6. SANDIMMUNE [Suspect]
     Indication: PSORIASIS
     Dosage: 200-125 MG/DAY
     Route: 048
     Dates: start: 19931111, end: 20001220
  7. NABOAL - SLOW RELEASE [Suspect]
     Route: 048

REACTIONS (20)
  - ABDOMINAL PAIN [None]
  - ANOREXIA [None]
  - BLOOD CREATININE INCREASED [None]
  - BLOOD UREA INCREASED [None]
  - DECREASED APPETITE [None]
  - DEPRESSED LEVEL OF CONSCIOUSNESS [None]
  - HAEMATOCHEZIA [None]
  - HAEMOGLOBIN DECREASED [None]
  - HYPOAESTHESIA [None]
  - LUNG NEOPLASM MALIGNANT [None]
  - METASTASES TO BONE [None]
  - METASTASIS [None]
  - MULTI-ORGAN FAILURE [None]
  - NON-CARDIAC CHEST PAIN [None]
  - PARALYSIS [None]
  - PLEURAL EFFUSION [None]
  - RED BLOOD CELL COUNT DECREASED [None]
  - RENAL FAILURE CHRONIC [None]
  - RESPIRATORY FAILURE [None]
  - WEIGHT DECREASED [None]
